FAERS Safety Report 11648683 (Version 3)
Quarter: 2015Q4

REPORT INFORMATION
  Report Type: Spontaneous
  Country: US (occurrence: US)
  Receive Date: 20151021
  Receipt Date: 20151113
  Transmission Date: 20160304
  Serious: Yes (Hospitalization)
  Sender: FDA-Public Use
  Company Number: US-UNITED THERAPEUTICS-UNT-2015-013010

PATIENT
  Age: 59 Year
  Sex: Male
  Weight: 95.24 kg

DRUGS (3)
  1. VIAGRA [Concomitant]
     Active Substance: SILDENAFIL CITRATE
     Indication: PRODUCT USED FOR UNKNOWN INDICATION
  2. ADCIRCA [Concomitant]
     Active Substance: TADALAFIL
     Indication: PRODUCT USED FOR UNKNOWN INDICATION
  3. REMODULIN [Suspect]
     Active Substance: TREPROSTINIL
     Indication: PULMONARY HYPERTENSION
     Dosage: 0.0375 ?G/KG, CONTINUING
     Route: 058
     Dates: start: 20141117

REACTIONS (8)
  - Hypertension [Unknown]
  - Fluid retention [Unknown]
  - Fluid overload [Unknown]
  - Hypotension [Unknown]
  - Weight decreased [Unknown]
  - Dizziness [Unknown]
  - Pulmonary arterial hypertension [Unknown]
  - Oedema [Unknown]

NARRATIVE: CASE EVENT DATE: 2015
